FAERS Safety Report 12716392 (Version 1)
Quarter: 2016Q3

REPORT INFORMATION
  Report Type: Spontaneous
  Country: IT (occurrence: IT)
  Receive Date: 20160906
  Receipt Date: 20160906
  Transmission Date: 20161109
  Serious: Yes (Other)
  Sender: FDA-Public Use
  Company Number: IT-TEVA-688723ACC

PATIENT
  Age: 85 Year
  Sex: Female

DRUGS (1)
  1. ALLOPURINOL. [Suspect]
     Active Substance: ALLOPURINOL
     Indication: PRODUCT USED FOR UNKNOWN INDICATION
     Dates: start: 20160710, end: 20160808

REACTIONS (4)
  - Erythema [Unknown]
  - Flushing [Unknown]
  - Face oedema [Unknown]
  - Pruritus [Unknown]

NARRATIVE: CASE EVENT DATE: 20160710
